FAERS Safety Report 9627914 (Version 2)
Quarter: 2014Q2

REPORT INFORMATION
  Report Type: Spontaneous
  Country: US (occurrence: US)
  Receive Date: 20131016
  Receipt Date: 20140523
  Transmission Date: 20141212
  Serious: No
  Sender: FDA-Public Use
  Company Number: US-LUNDBECK-DKLU1093076

PATIENT
  Age: 7 Year
  Sex: Male

DRUGS (3)
  1. SABRIL     (TABLET) [Suspect]
     Indication: PRODUCT USED FOR UNKNOWN INDICATION
     Route: 048
     Dates: start: 20091013
  2. SABRIL     (TABLET) [Suspect]
     Dates: start: 20130122
  3. SABRIL     (TABLET) [Suspect]
     Dates: start: 201308

REACTIONS (1)
  - Drug dose omission [Unknown]
